FAERS Safety Report 7704297-1 (Version None)
Quarter: 2011Q3

REPORT INFORMATION
  Report Type: 
  Country: None (occurrence: None)
  Receive Date: 20110823
  Receipt Date: 20110811
  Transmission Date: 20111222
  Serious: Yes (Other)
  Sender: FDA-Public Use
  Company Number: PHEH2011US01440

PATIENT
  Sex: Female

DRUGS (1)
  1. GILENYA [Suspect]
     Indication: MULTIPLE SCLEROSIS
     Dosage: 0.5 MG, QD
     Route: 048
     Dates: start: 20110615

REACTIONS (7)
  - HANGOVER [None]
  - VERTIGO [None]
  - FALL [None]
  - HEMIPARESIS [None]
  - DIZZINESS [None]
  - OEDEMA PERIPHERAL [None]
  - ASTHENIA [None]
